FAERS Safety Report 10232719 (Version 1)
Quarter: 2014Q2

REPORT INFORMATION
  Report Type: Spontaneous
  Country: US (occurrence: None)
  Receive Date: 20140506
  Receipt Date: 20140506
  Transmission Date: 20141212
  Serious: Yes (Disabling, Other)
  Sender: FDA-Public Use
  Company Number: 1229640

PATIENT
  Sex: Female

DRUGS (2)
  1. AVASTIN (BEVACIZUMAB) [Suspect]
     Indication: BREAST CANCER METASTATIC
     Dosage: UNKNOWN
  2. PACLITAXEL (PACLITAXEL) [Concomitant]

REACTIONS (2)
  - Impaired healing [None]
  - Haemorrhage [None]
